FAERS Safety Report 6816289-5 (Version None)
Quarter: 2010Q2

REPORT INFORMATION
  Report Type: 
  Country: None (occurrence: None)
  Receive Date: 20100630
  Receipt Date: 20100625
  Transmission Date: 20101027
  Serious: Yes (Hospitalization)
  Sender: FDA-Public Use
  Company Number: 102037

PATIENT
  Age: 70 Year
  Sex: Male

DRUGS (1)
  1. LEUCOVORIN CALCIUM [Suspect]
     Indication: RECTAL CANCER METASTATIC
     Dosage: 400 MG/M2 FOR 1/2 WEEK
     Dates: start: 20100429

REACTIONS (1)
  - GASTROINTESTINAL HAEMORRHAGE [None]
